FAERS Safety Report 8473776-4 (Version None)
Quarter: 2012Q2

REPORT INFORMATION
  Report Type: 
  Country: None (occurrence: None)
  Receive Date: 20120628
  Receipt Date: 20120315
  Transmission Date: 20120825
  Serious: Yes (Death)
  Sender: FDA-Public Use
  Company Number: US-MYLANLABS-2011S1022959

PATIENT
  Age: 41 Year
  Sex: Male

DRUGS (16)
  1. NEXIUM [Concomitant]
     Route: 048
  2. ASCORBIC ACID [Concomitant]
     Route: 048
  3. SENNA-MINT WAF [Concomitant]
     Route: 048
  4. LAMOTRIGINE [Concomitant]
     Route: 048
  5. CLOZAPINE [Suspect]
     Route: 048
  6. CLONAZEPAM [Concomitant]
     Route: 048
  7. APAP TAB [Concomitant]
     Indication: PAIN
     Dosage: (2) EVERY 4 HOURS PRN FOR PAIN OR FEVER } 100 F; (8) TABS MAX PER 24 HOURS
     Route: 048
  8. CLOZAPINE [Suspect]
     Route: 048
  9. TRAZODONE HCL [Concomitant]
     Route: 048
  10. FLUOXETINE [Concomitant]
     Route: 048
  11. METOCLOPRAMIDE [Concomitant]
     Route: 048
  12. CLOZAPINE [Suspect]
     Indication: SCHIZOPHRENIA
     Dates: start: 20060621
  13. FERROUS SULFATE TAB [Concomitant]
     Route: 048
  14. CLOZAPINE [Suspect]
     Indication: PSYCHOTIC DISORDER
     Dates: start: 20060621
  15. PROPRANOLOL HYDROCHLORIDE [Concomitant]
     Route: 048
  16. DOCUSATE SODIUM [Concomitant]
     Route: 048

REACTIONS (1)
  - NEOPLASM MALIGNANT [None]
